FAERS Safety Report 18870053 (Version 2)
Quarter: 2021Q1

REPORT INFORMATION
  Report Type: Spontaneous
  Country: US (occurrence: US)
  Receive Date: 20210209
  Receipt Date: 20210212
  Transmission Date: 20210420
  Serious: Yes (Other)
  Sender: FDA-Public Use
  Company Number: US-SA-2021SA033860

PATIENT
  Age: 65 Year
  Sex: Female

DRUGS (7)
  1. NASACORT ALLERGY 24HR [Suspect]
     Active Substance: TRIAMCINOLONE ACETONIDE
     Dosage: 2 PUFFS, BID
     Dates: end: 20201215
  2. AZELASTINE. [Concomitant]
     Active Substance: AZELASTINE HYDROCHLORIDE
  3. PSEUDOEPHEDRINE HYDROCHLORIDE. [Suspect]
     Active Substance: PSEUDOEPHEDRINE HYDROCHLORIDE
     Dosage: UNK
     Route: 065
  4. CORTISONE ACETATE. [Suspect]
     Active Substance: CORTISONE ACETATE
     Dosage: UNK
  5. ZANTAC [Concomitant]
     Active Substance: RANITIDINE HYDROCHLORIDE
     Indication: GASTROOESOPHAGEAL REFLUX DISEASE
  6. CLARITINE [Concomitant]
     Active Substance: LORATADINE
     Dosage: UNK
  7. PEPCID AC [Concomitant]
     Active Substance: FAMOTIDINE
     Indication: GASTROOESOPHAGEAL REFLUX DISEASE
     Dosage: UNK

REACTIONS (6)
  - Cataract [Unknown]
  - Headache [Unknown]
  - Sluggishness [Unknown]
  - Halo vision [Unknown]
  - Blood pressure increased [Unknown]
  - Nasal operation [Unknown]

NARRATIVE: CASE EVENT DATE: 202012
